FAERS Safety Report 14654053 (Version 1)
Quarter: 2018Q1

REPORT INFORMATION
  Report Type: Spontaneous
  Country: US (occurrence: US)
  Receive Date: 20180317
  Receipt Date: 20180317
  Transmission Date: 20180509
  Serious: No
  Sender: FDA-Public Use
  Company Number: None

PATIENT
  Age: 27 Year
  Sex: Female
  Weight: 64.8 kg

DRUGS (5)
  1. ALKA-SELTZER PLUS SEVERE COLD AND FLU FORMULA [Suspect]
     Active Substance: ACETAMINOPHEN\CHLORPHENIRAMINE\DEXTROMETHORPHAN\PHENYLEPHRINE
     Indication: INFLUENZA
     Route: 048
     Dates: start: 20180312, end: 20180313
  2. WOMEN^S VITAMINS [Concomitant]
  3. OMEGA [Concomitant]
     Active Substance: CONVALLARIA MAJALIS\CRATAEGUS LAEVIGATA LEAF\PROXYPHYLLINE
  4. ALKA-SELTZER PLUS SEVERE COLD AND FLU FORMULA [Suspect]
     Active Substance: ACETAMINOPHEN\CHLORPHENIRAMINE\DEXTROMETHORPHAN\PHENYLEPHRINE
     Indication: NASOPHARYNGITIS
     Route: 048
     Dates: start: 20180312, end: 20180313
  5. VITAMIN D [Concomitant]
     Active Substance: CHOLECALCIFEROL

REACTIONS (3)
  - Nausea [None]
  - Regurgitation [None]
  - Headache [None]

NARRATIVE: CASE EVENT DATE: 20180313
